FAERS Safety Report 24171475 (Version 1)
Quarter: 2024Q3

REPORT INFORMATION
  Report Type: Spontaneous
  Country: CN (occurrence: CN)
  Receive Date: 20240805
  Receipt Date: 20240805
  Transmission Date: 20241017
  Serious: Yes (Other)
  Sender: BAXTER
  Company Number: None

PATIENT
  Age: 47 Year
  Sex: Male

DRUGS (5)
  1. IFOSFAMIDE [Suspect]
     Active Substance: IFOSFAMIDE
     Indication: Soft tissue sarcoma
     Dosage: 2 G, ONE TIME IN ONE DAY, D1, ROUTE: INJECTION IN PUMP
     Route: 050
     Dates: start: 20240628, end: 20240628
  2. IFOSFAMIDE [Suspect]
     Active Substance: IFOSFAMIDE
     Indication: Spindle cell sarcoma
  3. MESNA [Suspect]
     Active Substance: MESNA
     Indication: Soft tissue sarcoma
     Dosage: UNK, 0, 4, 8H
     Route: 065
     Dates: start: 20240628
  4. DOXORUBICIN HYDROCHLORIDE [Suspect]
     Active Substance: DOXORUBICIN HYDROCHLORIDE
     Indication: Soft tissue sarcoma
     Dosage: 50 MG, ONE TIME IN ONE DAY, D1, ROUTE: INJECTION IN PUMP
     Route: 050
     Dates: start: 20240628, end: 20240628
  5. DOXORUBICIN HYDROCHLORIDE [Suspect]
     Active Substance: DOXORUBICIN HYDROCHLORIDE
     Indication: Spindle cell sarcoma

REACTIONS (2)
  - Myelosuppression [Recovering/Resolving]
  - Anaemia [Recovering/Resolving]

NARRATIVE: CASE EVENT DATE: 20240630
